FAERS Safety Report 4319549-5 (Version None)
Quarter: 2004Q1

REPORT INFORMATION
  Report Type: 
  Country: None (occurrence: None)
  Receive Date: 20040318
  Receipt Date: 20040318
  Transmission Date: 20041129
  Serious: Yes (Hospitalization)
  Sender: FDA-Public Use
  Company Number: None

PATIENT
  Age: 44 Year
  Sex: Female
  Weight: 68.0396 kg

DRUGS (2)
  1. WELLBUTRIN [Suspect]
     Indication: MAJOR DEPRESSION
     Dosage: 100 MG BID
     Dates: start: 20031231, end: 20040225
  2. WELLBUTRIN [Suspect]
     Dosage: 150 MG TID
     Dates: start: 20040225, end: 20040303

REACTIONS (7)
  - CONDITION AGGRAVATED [None]
  - GRANULOMA [None]
  - MENTAL DISORDER [None]
  - NEPHRITIS INTERSTITIAL [None]
  - PROTEINURIA [None]
  - PYURIA [None]
  - RENAL FAILURE [None]
